FAERS Safety Report 8110593-9 (Version None)
Quarter: 2012Q1

REPORT INFORMATION
  Report Type: 
  Country: None (occurrence: None)
  Receive Date: 20120203
  Receipt Date: 20120127
  Transmission Date: 20120608
  Serious: No
  Sender: FDA-Public Use
  Company Number: US-PFIZER INC-2011308609

PATIENT
  Sex: Female

DRUGS (2)
  1. LISINOPRIL [Suspect]
  2. AMLODIPINE [Suspect]

REACTIONS (4)
  - LETHARGY [None]
  - RESPIRATORY TRACT CONGESTION [None]
  - FLUID RETENTION [None]
  - COUGH [None]
